FAERS Safety Report 8042508-6 (Version None)
Quarter: 2012Q1

REPORT INFORMATION
  Report Type: 
  Country: None (occurrence: None)
  Receive Date: 20120112
  Receipt Date: 20120109
  Transmission Date: 20120608
  Serious: Yes (Other)
  Sender: FDA-Public Use
  Company Number: US-PFIZER INC-2012006873

PATIENT
  Sex: Female
  Weight: 67.12 kg

DRUGS (2)
  1. LYRICA [Suspect]
     Indication: CONVULSION
     Dosage: 250 MG, 2X/DAY
     Dates: end: 20110101
  2. DILANTIN [Concomitant]
     Indication: CONVULSION
     Dosage: 300 MG, DAILY

REACTIONS (3)
  - TREMOR [None]
  - COLD SWEAT [None]
  - CONVULSION [None]
